FAERS Safety Report 4700809-0 (Version None)
Quarter: 2005Q2

REPORT INFORMATION
  Report Type: 
  Country: None (occurrence: None)
  Receive Date: 20050624
  Receipt Date: 20040531
  Transmission Date: 20051028
  Serious: Yes (Disabling)
  Sender: FDA-Public Use
  Company Number: 369355

PATIENT
  Age: 78 Year
  Sex: Male

DRUGS (5)
  1. CAPECITABINE (CAPECITABINE) [Suspect]
     Indication: COLON CANCER METASTATIC
     Dosage: 2500 MG/M2
  2. CAPECITABINE (CAPECITABINE) [Suspect]
     Indication: METASTASIS
     Dosage: 2500 MG/M2
  3. LEUCOVORIN CALCIUM [Concomitant]
  4. CPT-11 (IRINOTECAN HYDROCHLORIDE) [Concomitant]
  5. FLUOROURACIL [Concomitant]

REACTIONS (1)
  - PALMAR-PLANTAR ERYTHRODYSAESTHESIA SYNDROME [None]
